FAERS Safety Report 5521737-7 (Version None)
Quarter: 2007Q4

REPORT INFORMATION
  Report Type: 
  Country: None (occurrence: None)
  Receive Date: 20071120
  Receipt Date: 20071109
  Transmission Date: 20080405
  Serious: Yes (Other)
  Sender: FDA-Public Use
  Company Number: US-JNJFOC-20070806247

PATIENT
  Sex: Female
  Weight: 67.59 kg

DRUGS (10)
  1. REMICADE [Suspect]
     Route: 042
  2. REMICADE [Suspect]
     Route: 042
  3. REMICADE [Suspect]
     Indication: CROHN'S DISEASE
     Route: 042
  4. PREDNISONE TAB [Concomitant]
     Indication: PAIN
  5. OXYCONTIN [Concomitant]
     Indication: PAIN
  6. PROTONIX [Concomitant]
  7. PERCOSET [Concomitant]
  8. REGLAN [Concomitant]
  9. LORAZEPAM [Concomitant]
  10. PENTASA [Concomitant]

REACTIONS (11)
  - CHILLS [None]
  - COUGH [None]
  - DYSPNOEA [None]
  - HOT FLUSH [None]
  - INFLUENZA LIKE ILLNESS [None]
  - INFUSION RELATED REACTION [None]
  - MUSCULOSKELETAL PAIN [None]
  - NAUSEA [None]
  - NEUROPATHY [None]
  - RASH [None]
  - URINARY TRACT INFECTION [None]
